FAERS Safety Report 4885118-1 (Version None)
Quarter: 2006Q1

REPORT INFORMATION
  Report Type: 
  Country: None (occurrence: None)
  Receive Date: 20060117
  Receipt Date: 20060104
  Transmission Date: 20060701
  Serious: Yes (Death)
  Sender: FDA-Public Use
  Company Number: 2005127617

PATIENT
  Age: 24 Year

DRUGS (5)
  1. SERTRALINE [Suspect]
     Indication: ILL-DEFINED DISORDER
  2. DIAZEPAM [Suspect]
     Indication: ILL-DEFINED DISORDER
  3. TIAGABINE HCL [Suspect]
     Indication: ILL-DEFINED DISORDER
  4. OLANZAPINE [Suspect]
     Indication: ILL-DEFINED DISORDER
  5. QUETIAPINE FUMARATE [Suspect]
     Indication: ILL-DEFINED DISORDER

REACTIONS (3)
  - CARDIO-RESPIRATORY ARREST [None]
  - COMPLETED SUICIDE [None]
  - DRUG TOXICITY [None]
